FAERS Safety Report 4827263-2 (Version None)
Quarter: 2005Q4

REPORT INFORMATION
  Report Type: 
  Country: None (occurrence: None)
  Receive Date: 20051114
  Receipt Date: 20051103
  Transmission Date: 20060501
  Serious: Yes (Hospitalization)
  Sender: FDA-Public Use
  Company Number: 2005SE06341

PATIENT
  Age: 24837 Day
  Sex: Male

DRUGS (13)
  1. ROSUVASTATIN [Suspect]
     Indication: CARDIAC FAILURE CHRONIC
     Route: 048
     Dates: start: 20040706
  2. ENALAPRIL [Concomitant]
     Indication: CARDIAC FAILURE
     Route: 048
  3. DILATREND [Concomitant]
     Indication: CARDIAC FAILURE
     Route: 048
  4. HYDROCHLOROTHIAZIDE [Concomitant]
     Indication: CARDIAC FAILURE
     Route: 048
  5. ATACAND [Concomitant]
     Indication: CARDIAC FAILURE
     Route: 048
     Dates: start: 20040601
  6. ASPIRIN [Concomitant]
     Indication: CORONARY ARTERY DISEASE
     Route: 048
  7. INDOMETHACIN [Concomitant]
     Indication: OSTEOARTHRITIS
     Route: 048
  8. SPIRONOLACTONE [Concomitant]
     Indication: CARDIAC FAILURE
     Route: 048
     Dates: start: 20011221
  9. PENTAERYTHRITOL TETRANITRATE [Concomitant]
     Indication: ANGINA PECTORIS
     Route: 048
     Dates: start: 20050623
  10. FRAXIPARIN [Concomitant]
     Indication: THROMBOSIS PROPHYLAXIS
     Route: 058
     Dates: start: 20050623
  11. DIGITOXIN TAB [Concomitant]
     Indication: CARDIAC FAILURE
     Route: 048
     Dates: start: 20051005
  12. TOREM [Concomitant]
     Indication: CARDIAC FAILURE
     Route: 048
     Dates: start: 20051005
  13. ACC LONG [Concomitant]
     Indication: COUGH
     Route: 048
     Dates: start: 20051004

REACTIONS (3)
  - ATRIAL FIBRILLATION [None]
  - ATRIAL FLUTTER [None]
  - CARDIAC FAILURE [None]
